FAERS Safety Report 4585343-3 (Version None)
Quarter: 2005Q1

REPORT INFORMATION
  Report Type: 
  Country: None (occurrence: None)
  Receive Date: 20050214
  Receipt Date: 20050202
  Transmission Date: 20050727
  Serious: Yes (Other)
  Sender: FDA-Public Use
  Company Number: 2005024014

PATIENT
  Age: 67 Year
  Sex: Female
  Weight: 62.1428 kg

DRUGS (7)
  1. LIPITOR [Suspect]
     Indication: BLOOD CHOLESTEROL INCREASED
     Dosage: 10 MG (10 MG, 1 IN 1 D), ORAL
     Route: 048
     Dates: end: 20050131
  2. PACLITAXEL [Suspect]
     Indication: ILL-DEFINED DISORDER
     Dosage: (1 IN 21 D)
     Dates: start: 20041104, end: 20050101
  3. METOPROLOL SUCCINATE [Concomitant]
  4. ACETYLSALICYLIC ACID SRT [Concomitant]
  5. ESOMEPRAZOLE (ESOMEPRAZOLE) [Concomitant]
  6. OXYCOCET (OXYCONDONE HYDROCHLORIDE, PARACETAMOL) [Concomitant]
  7. FENTANUL (FENTANYL) [Concomitant]

REACTIONS (9)
  - ALANINE AMINOTRANSFERASE INCREASED [None]
  - ASPARTATE AMINOTRANSFERASE INCREASED [None]
  - BLOOD ALKALINE PHOSPHATASE INCREASED [None]
  - DRUG INTERACTION [None]
  - GAMMA-GLUTAMYLTRANSFERASE INCREASED [None]
  - LUNG ADENOCARCINOMA [None]
  - LYMPHADENOPATHY [None]
  - MUSCLE SPASMS [None]
  - MYALGIA [None]
